FAERS Safety Report 8491130-6 (Version None)
Quarter: 2012Q3

REPORT INFORMATION
  Report Type: 
  Country: None (occurrence: None)
  Receive Date: 20120706
  Receipt Date: 20120626
  Transmission Date: 20120928
  Serious: Yes (Hospitalization)
  Sender: FDA-Public Use
  Company Number: FR-MPIJNJ-2012-04299

PATIENT

DRUGS (11)
  1. VELCADE [Suspect]
     Indication: MULTIPLE MYELOMA
     Dosage: 2.5 MG, UNK
     Route: 065
     Dates: start: 20120604, end: 20120614
  2. DEXAMETHASONE [Suspect]
     Indication: MULTIPLE MYELOMA
     Dosage: 20 MG, UNK
     Route: 065
     Dates: start: 20120604, end: 20120611
  3. EFFERALGAN                         /00020001/ [Concomitant]
     Dosage: UNK
     Route: 048
     Dates: start: 20120501
  4. INNOHEP [Concomitant]
     Dosage: UNK
     Route: 058
     Dates: start: 20120606
  5. ZELITREX                           /01269701/ [Concomitant]
     Dosage: UNK
     Route: 048
     Dates: start: 20120604
  6. BACTRIM [Concomitant]
     Dosage: UNK
     Route: 048
     Dates: start: 20120604
  7. REVLIMID [Suspect]
     Dosage: 25 UNK, UNK
     Route: 065
     Dates: start: 20120625
  8. REVLIMID [Suspect]
     Indication: MULTIPLE MYELOMA
     Dosage: 25 MG, UNK
     Route: 065
     Dates: start: 20120604, end: 20120611
  9. DEXAMETHASONE [Suspect]
     Dosage: 20 UNK, UNK
     Route: 065
     Dates: start: 20120625
  10. AMOXICILLIN [Concomitant]
     Dosage: UNK
     Route: 048
     Dates: start: 20120604
  11. VELCADE [Suspect]
     Dosage: 2.5 UNK, UNK
     Route: 065
     Dates: start: 20120625

REACTIONS (4)
  - HYPOXIA [None]
  - RENAL FAILURE [None]
  - LUNG DISORDER [None]
  - HYPERTHERMIA [None]
